FAERS Safety Report 22116347 (Version 1)
Quarter: 2023Q1

REPORT INFORMATION
  Report Type: Spontaneous
  Country: US (occurrence: None)
  Receive Date: 20230320
  Receipt Date: 20230320
  Transmission Date: 20230418
  Serious: Yes (Life-Threatening, Other)
  Sender: FDA-Public Use
  Company Number: None

PATIENT
  Sex: Female

DRUGS (1)
  1. GABAPENTIN [Suspect]
     Active Substance: GABAPENTIN
     Indication: Neuropathy peripheral
     Dosage: FREQUENCY : 3 TIMES A DAY;?
     Route: 048
     Dates: end: 20230315

REACTIONS (3)
  - Hallucinations, mixed [None]
  - Communication disorder [None]
  - Therapy cessation [None]

NARRATIVE: CASE EVENT DATE: 20230222
